FAERS Safety Report 12662310 (Version 1)
Quarter: 2016Q3

REPORT INFORMATION
  Report Type: Spontaneous
  Country: US (occurrence: US)
  Receive Date: 20160817
  Receipt Date: 20160817
  Transmission Date: 20161109
  Serious: No
  Sender: FDA-Public Use
  Company Number: US-ASTRAZENECA-2016SE87133

PATIENT
  Age: 663 Month
  Sex: Male
  Weight: 68 kg

DRUGS (6)
  1. MOVANTIK [Suspect]
     Active Substance: NALOXEGOL OXALATE
     Indication: CONSTIPATION
     Route: 048
     Dates: start: 201608, end: 201608
  2. FENTANYL. [Interacting]
     Active Substance: FENTANYL
     Route: 065
  3. MOVANTIK [Interacting]
     Active Substance: NALOXEGOL OXALATE
     Indication: DRUG THERAPY
     Dosage: 12.5 MG BY SPLITTING THE 25 MG TABLET IN HALF
     Route: 048
     Dates: start: 201608, end: 201608
  4. OPIOID [Concomitant]
     Active Substance: UNSPECIFIED INGREDIENT
  5. MOVANTIK [Interacting]
     Active Substance: NALOXEGOL OXALATE
     Indication: DRUG THERAPY
     Route: 048
     Dates: start: 201608, end: 201608
  6. MOVANTIK [Interacting]
     Active Substance: NALOXEGOL OXALATE
     Indication: CONSTIPATION
     Dosage: 12.5 MG BY SPLITTING THE 25 MG TABLET IN HALF
     Route: 048
     Dates: start: 201608, end: 201608

REACTIONS (5)
  - Drug interaction [Unknown]
  - Drug dose omission [Unknown]
  - Diarrhoea [Unknown]
  - Abdominal pain upper [Unknown]
  - Intentional product misuse [Unknown]

NARRATIVE: CASE EVENT DATE: 201608
